FAERS Safety Report 20815804 (Version 1)
Quarter: 2022Q2

REPORT INFORMATION
  Report Type: Spontaneous
  Country: US (occurrence: US)
  Receive Date: 20220511
  Receipt Date: 20220511
  Transmission Date: 20220721
  Serious: No
  Sender: FDA-Public Use
  Company Number: US-PFIZER INC-202200328047

PATIENT
  Age: 57 Year
  Sex: Male

DRUGS (1)
  1. XELJANZ [Suspect]
     Active Substance: TOFACITINIB CITRATE
     Dosage: 10 MG
     Dates: start: 20220101

REACTIONS (1)
  - Diarrhoea [Unknown]
